FAERS Safety Report 20838145 (Version 2)
Quarter: 2022Q2

REPORT INFORMATION
  Report Type: Spontaneous
  Country: JP (occurrence: JP)
  Receive Date: 20220517
  Receipt Date: 20220617
  Transmission Date: 20220721
  Serious: Yes (Hospitalization, Other)
  Sender: FDA-Public Use
  Company Number: JP-ASTELLAS-2022JP006915

PATIENT
  Age: 8 Decade

DRUGS (1)
  1. PADCEV [Suspect]
     Active Substance: ENFORTUMAB VEDOTIN-EJFV
     Indication: Product used for unknown indication
     Dosage: UNK UNK, UNKNOWN FREQ.
     Route: 065
     Dates: start: 20211219

REACTIONS (4)
  - Sepsis [Recovered/Resolved]
  - Skin disorder [Recovered/Resolved]
  - Diarrhoea [Recovered/Resolved]
  - Alopecia [Recovered/Resolved]
